FAERS Safety Report 6711502-7 (Version None)
Quarter: 2010Q2

REPORT INFORMATION
  Report Type: 
  Country: None (occurrence: None)
  Receive Date: 20100505
  Receipt Date: 20100420
  Transmission Date: 20101027
  Serious: Yes (Hospitalization, Other)
  Sender: FDA-Public Use
  Company Number: PHEH2004US09998

PATIENT

DRUGS (19)
  1. ZOMETA [Suspect]
     Indication: METASTASES TO BONE
     Dosage: 4 MG, QMO
     Route: 042
     Dates: start: 20020501, end: 20040915
  2. AREDIA [Suspect]
     Dosage: 90MG, MONTHLY
     Dates: start: 19980701, end: 20020501
  3. TAMOXIFEN CITRATE [Concomitant]
     Dates: start: 19980101
  4. MEGACE [Concomitant]
     Indication: HOT FLUSH
     Dates: start: 19980101
  5. VIOXX [Concomitant]
     Dates: start: 19980101
  6. VICODIN [Concomitant]
     Dates: start: 19980101
  7. TAXOL [Concomitant]
     Dates: start: 19980101
  8. ADRIAMYCIN PFS [Concomitant]
     Dates: start: 19980101
  9. ARIMIDEX [Concomitant]
     Dosage: 1 MG, QD
  10. TEGRETOL [Concomitant]
     Indication: NEUROPATHY PERIPHERAL
  11. LOMOTIL [Concomitant]
  12. PERCOCET [Concomitant]
  13. FLAGYL [Concomitant]
  14. PENICILLIN ^GRUNENTHAL^ [Concomitant]
  15. AMITRIPTYLINE HYDROCHLORIDE [Concomitant]
  16. ACETAMINOPHEN AND HYDROCODONE BITARTRATE [Concomitant]
  17. DOLASETRON [Concomitant]
  18. CIMETIDINE [Concomitant]
  19. INFLUENZA VACCINE [Concomitant]

REACTIONS (53)
  - ANAEMIA [None]
  - ANXIETY [None]
  - ARTHRALGIA [None]
  - BONE DENSITY DECREASED [None]
  - BONE DISORDER [None]
  - CARPAL TUNNEL SYNDROME [None]
  - CERVICAL SPINAL STENOSIS [None]
  - CHONDROMALACIA [None]
  - CHRONIC SINUSITIS [None]
  - CONTUSION [None]
  - CREPITATIONS [None]
  - CYTOREDUCTIVE SURGERY [None]
  - DIVERTICULITIS [None]
  - DRUG HYPERSENSITIVITY [None]
  - DUODENAL ULCER [None]
  - DYSPNOEA EXERTIONAL [None]
  - DYSSTASIA [None]
  - EXTRASYSTOLES [None]
  - EYE IRRITATION [None]
  - FALL [None]
  - FATIGUE [None]
  - FISTULA [None]
  - FLUSHING [None]
  - FRACTURE [None]
  - GALLBLADDER POLYP [None]
  - HAEMATOCHEZIA [None]
  - HEART VALVE INCOMPETENCE [None]
  - HEPATIC CYST [None]
  - HYPOAESTHESIA [None]
  - IMPAIRED HEALING [None]
  - INFECTION [None]
  - JOINT EFFUSION [None]
  - JOINT SPRAIN [None]
  - KNEE OPERATION [None]
  - MENISCUS LESION [None]
  - MUSCULOSKELETAL PAIN [None]
  - NECK PAIN [None]
  - OROPHARYNGEAL PAIN [None]
  - OSTEOARTHRITIS [None]
  - OSTEONECROSIS OF JAW [None]
  - OSTEOPENIA [None]
  - OVARIAN CANCER [None]
  - PAIN [None]
  - PAIN IN EXTREMITY [None]
  - PARAESTHESIA [None]
  - PURULENT DISCHARGE [None]
  - PYREXIA [None]
  - RHINITIS ALLERGIC [None]
  - SCOLIOSIS [None]
  - SPINAL DISORDER [None]
  - SPONDYLOLISTHESIS [None]
  - SURGERY [None]
  - TOOTH EXTRACTION [None]
